FAERS Safety Report 21404934 (Version 1)
Quarter: 2022Q4

REPORT INFORMATION
  Report Type: Spontaneous
  Country: US (occurrence: None)
  Receive Date: 20221003
  Receipt Date: 20221003
  Transmission Date: 20230112
  Serious: No
  Sender: FDA-Public Use
  Company Number: None

PATIENT
  Sex: Female

DRUGS (1)
  1. XELJANZ XR [Suspect]
     Active Substance: TOFACITINIB CITRATE
     Indication: Rheumatoid arthritis
     Dosage: 11 MG DAILY ORAL?
     Route: 048
     Dates: start: 20211209

REACTIONS (3)
  - Therapy non-responder [None]
  - Therapeutic product effect decreased [None]
  - COVID-19 [None]
